FAERS Safety Report 4565334-9 (Version None)
Quarter: 2005Q1

REPORT INFORMATION
  Report Type: 
  Country: None (occurrence: None)
  Receive Date: 20050127
  Receipt Date: 20050127
  Transmission Date: 20050727
  Serious: Yes (Hospitalization)
  Sender: FDA-Public Use
  Company Number: None

PATIENT
  Age: 64 Year
  Sex: Male
  Weight: 112.9 kg

DRUGS (9)
  1. IBUPROFEN [Suspect]
  2. FELODIPINE [Concomitant]
  3. FOSINOPRIL [Concomitant]
  4. SIMVASTATIN [Concomitant]
  5. CIMETIDINE [Concomitant]
  6. DOCUSATE [Concomitant]
  7. FUROSEMIDE [Concomitant]
  8. PSYLLIUM MUCILLOID [Concomitant]
  9. FLUNISOLIDE [Concomitant]

REACTIONS (1)
  - NEPHRITIS [None]
